FAERS Safety Report 16486106 (Version 1)
Quarter: 2019Q2

REPORT INFORMATION
  Report Type: Spontaneous
  Country: IT (occurrence: IT)
  Receive Date: 20190627
  Receipt Date: 20190627
  Transmission Date: 20190711
  Serious: Yes (Other)
  Sender: FDA-Public Use
  Company Number: IT-AMGEN-ITASP2019100043

PATIENT
  Age: 67 Year
  Sex: Male

DRUGS (4)
  1. DOXIFLURIDINE [Suspect]
     Active Substance: DOXIFLURIDINE
     Indication: COLON CANCER METASTATIC
     Dosage: 700 MILLIGRAM, CYCLICAL
     Route: 040
     Dates: start: 20190304
  2. IRINOTECAN [Suspect]
     Active Substance: IRINOTECAN
     Indication: COLON CANCER METASTATIC
     Dosage: 320 MILLIGRAM, CYCLICAL
     Route: 042
     Dates: start: 20190304
  3. VECTIBIX [Suspect]
     Active Substance: PANITUMUMAB
     Indication: COLON CANCER METASTATIC
     Dosage: 450 MILLIGRAM, CYCLICAL
     Route: 042
     Dates: start: 20190325
  4. 5-FLUOROURACIL [FLUOROURACIL] [Suspect]
     Active Substance: FLUOROURACIL
     Indication: COLON CANCER METASTATIC
     Dosage: 2000 MILLIGRAM, CYCLICAL
     Route: 042
     Dates: start: 20190304

REACTIONS (2)
  - Thrombocytopenia [Not Recovered/Not Resolved]
  - Anaemia [Not Recovered/Not Resolved]

NARRATIVE: CASE EVENT DATE: 20190611
